FAERS Safety Report 5924418-0 (Version None)
Quarter: 2008Q4

REPORT INFORMATION
  Report Type: 
  Country: None (occurrence: None)
  Receive Date: 20081020
  Receipt Date: 20081014
  Transmission Date: 20090506
  Serious: Yes (Other)
  Sender: FDA-Public Use
  Company Number: GR-ROXANE LABORATORIES, INC.-2008-RO-00129RO

PATIENT
  Age: 15 Year
  Sex: Female

DRUGS (4)
  1. PREDNISONE TAB [Suspect]
  2. PREDNISONE TAB [Suspect]
  3. METHOTREXATE [Suspect]
  4. CYCLOSPORINE [Suspect]

REACTIONS (2)
  - BONE LESION [None]
  - OSTEONECROSIS [None]
